FAERS Safety Report 22823129 (Version 3)
Quarter: 2025Q2

REPORT INFORMATION
  Report Type: Report from Study
  Country: US (occurrence: US)
  Receive Date: 20230815
  Receipt Date: 20250624
  Transmission Date: 20250717
  Serious: Yes (Other)
  Sender: ABBVIE
  Company Number: US-ABBVIE-5364894

PATIENT
  Age: 76 Year
  Sex: Male
  Weight: 70 kg

DRUGS (1)
  1. VENCLEXTA [Suspect]
     Active Substance: VENETOCLAX
     Indication: Chronic lymphocytic leukaemia
     Route: 048
     Dates: start: 20230526

REACTIONS (8)
  - Orthopaedic procedure [Unknown]
  - Arthropathy [Unknown]
  - Neck pain [Unknown]
  - Surgery [Unknown]
  - Dry mouth [Unknown]
  - Back disorder [Unknown]
  - Arthralgia [Unknown]
  - Dry skin [Unknown]

NARRATIVE: CASE EVENT DATE: 20230101
